FAERS Safety Report 23038029 (Version 2)
Quarter: 2023Q4

REPORT INFORMATION
  Report Type: Spontaneous
  Country: US (occurrence: US)
  Receive Date: 20231006
  Receipt Date: 20231020
  Transmission Date: 20240110
  Serious: Yes (Life-Threatening, Other)
  Sender: FDA-Public Use
  Company Number: US-PFIZER INC-PV202300165634

PATIENT
  Age: 41 Year
  Sex: Male

DRUGS (1)
  1. METHOTREXATE SODIUM [Suspect]
     Active Substance: METHOTREXATE SODIUM
     Dosage: 20 MG (1 DOSE)

REACTIONS (5)
  - Pancytopenia [Recovered/Resolved]
  - Bone marrow failure [Unknown]
  - Multiple organ dysfunction syndrome [Unknown]
  - Neutropenic sepsis [Recovered/Resolved]
  - Toxicity to various agents [Unknown]
